FAERS Safety Report 24958685 (Version 1)
Quarter: 2025Q1

REPORT INFORMATION
  Report Type: Spontaneous
  Country: JP (occurrence: JP)
  Receive Date: 20250212
  Receipt Date: 20250212
  Transmission Date: 20250409
  Serious: Yes (Hospitalization)
  Sender: UCB
  Company Number: JP-OTSUKA-2025_002853

PATIENT
  Age: 9 Decade
  Sex: Male

DRUGS (1)
  1. NEUPRO [Suspect]
     Active Substance: ROTIGOTINE
     Indication: Restless legs syndrome
     Route: 062
     Dates: end: 20250203

REACTIONS (3)
  - Condition aggravated [Unknown]
  - Asthenia [Recovering/Resolving]
  - Product dose omission issue [Unknown]
